FAERS Safety Report 5450849-1 (Version None)
Quarter: 2007Q3

REPORT INFORMATION
  Report Type: 
  Country: None (occurrence: None)
  Receive Date: 20070913
  Receipt Date: 20070906
  Transmission Date: 20080115
  Serious: Yes (Other)
  Sender: FDA-Public Use
  Company Number: PHNU2007DE03075

PATIENT
  Sex: Female

DRUGS (6)
  1. BISOPROLOL [Concomitant]
     Dosage: 2.5 MG, QD
     Route: 048
  2. AMLODIPINE [Concomitant]
     Dosage: 2.5 MG, QD
     Route: 048
  3. IMMUNOSPORIN [Suspect]
     Indication: MUSCULOSKELETAL PAIN
     Dosage: 100/0/50MG/DAY
  4. DECORTIN-H [Concomitant]
  5. ACTONEL PLUS CALCIUM [Concomitant]
  6. OMEPRAZOLE [Concomitant]
     Dosage: 20 MG, QD

REACTIONS (4)
  - AMBLYOPIA [None]
  - CONCOMITANT DISEASE AGGRAVATED [None]
  - GAIT DISTURBANCE [None]
  - VISION BLURRED [None]
